FAERS Safety Report 7784275-7 (Version None)
Quarter: 2011Q3

REPORT INFORMATION
  Report Type: 
  Country: None (occurrence: None)
  Receive Date: 20110928
  Receipt Date: 20110915
  Transmission Date: 20111222
  Serious: Yes (Other)
  Sender: FDA-Public Use
  Company Number: PHHY2011BR82492

PATIENT
  Age: 51 Year
  Sex: Male

DRUGS (6)
  1. SYNTHROID [Concomitant]
     Dosage: 25 UG,
  2. SYNTHROID [Concomitant]
     Dosage: 50 UG,
  3. ZETSIM [Concomitant]
     Dosage: 10/20 MG
  4. LASILACTONA [Concomitant]
     Dosage: 100/40 MG
  5. RASILEZ [Suspect]
     Indication: PROTEINURIA
     Dosage: UNK
     Dates: start: 20090423
  6. ZETSIM [Concomitant]
     Dosage: 10/40 MG

REACTIONS (10)
  - GLOMERULONEPHRITIS MEMBRANOPROLIFERATIVE [None]
  - HAEMATURIA [None]
  - PROTEINURIA [None]
  - OEDEMA [None]
  - BACK PAIN [None]
  - INFLUENZA [None]
  - DYSPEPSIA [None]
  - OEDEMA PERIPHERAL [None]
  - ABDOMINAL PAIN UPPER [None]
  - NOCTURIA [None]
